FAERS Safety Report 9769517 (Version 1)
Quarter: 2013Q3

REPORT INFORMATION
  Report Type: Spontaneous
  Country: US (occurrence: None)
  Receive Date: 20130910
  Receipt Date: 20130910
  Transmission Date: 20140515
  Serious: Yes (Other)
  Sender: FDA-Public Use
  Company Number: 2013GMK005504

PATIENT
  Sex: Female

DRUGS (1)
  1. NORGESTIMATE AND ETHINYL ESTRADIOL [Suspect]
     Indication: CONTRACEPTION
     Dosage: 1 DF, QD, AT THE SAME TIME, ORAL
     Route: 048
     Dates: end: 2010

REACTIONS (5)
  - Pregnancy on oral contraceptive [None]
  - Caesarean section [None]
  - Haemorrhage [None]
  - Product quality issue [None]
  - Exposure during pregnancy [None]
